FAERS Safety Report 25567628 (Version 3)
Quarter: 2025Q3

REPORT INFORMATION
  Report Type: Spontaneous
  Country: US (occurrence: US)
  Receive Date: 20250716
  Receipt Date: 20250918
  Transmission Date: 20251021
  Serious: Yes (Hospitalization, Other)
  Sender: SANOFI AVENTIS
  Company Number: US-SA-2025SA198115

PATIENT
  Age: 56 Year
  Sex: Male

DRUGS (3)
  1. DUPIXENT [Suspect]
     Active Substance: DUPILUMAB
     Indication: Chronic obstructive pulmonary disease
     Dosage: 300 MG, QOW
     Route: 058
     Dates: start: 20250502
  2. OXYGEN [Concomitant]
     Active Substance: OXYGEN
  3. OXYGEN [Concomitant]
     Active Substance: OXYGEN
     Dates: start: 202508

REACTIONS (13)
  - Pneumonia [Not Recovered/Not Resolved]
  - Unresponsive to stimuli [Recovering/Resolving]
  - Influenza [Recovering/Resolving]
  - Chest discomfort [Unknown]
  - Cough [Not Recovered/Not Resolved]
  - Secretion discharge [Not Recovered/Not Resolved]
  - Dyspnoea [Unknown]
  - Weight decreased [Unknown]
  - Weight increased [Unknown]
  - Oxygen consumption increased [Unknown]
  - Productive cough [Unknown]
  - Condition aggravated [Unknown]
  - Chronic obstructive pulmonary disease [Not Recovered/Not Resolved]

NARRATIVE: CASE EVENT DATE: 20250101
